FAERS Safety Report 8341649-3 (Version None)
Quarter: 2012Q2

REPORT INFORMATION
  Report Type: 
  Country: None (occurrence: None)
  Receive Date: 20120507
  Receipt Date: 20120504
  Transmission Date: 20120825
  Serious: Yes (Life-Threatening, Other)
  Sender: FDA-Public Use
  Company Number: US-JNJFOC-2007326885

PATIENT
  Sex: Female
  Weight: 61.2 kg

DRUGS (5)
  1. BENADRYL [Suspect]
     Route: 065
  2. BENADRYL [Suspect]
     Indication: PRODUCT USED FOR UNKNOWN INDICATION
     Dosage: DAILY DOSE TEXT: UNSPECIFIED
     Route: 065
  3. CHANTIX [Suspect]
     Indication: SMOKING CESSATION THERAPY
     Dosage: DAILY DOSE TEXT: .5MG ONCE QD, .5MG 2X QD, 1.0MG 2X QD
     Route: 065
     Dates: start: 20070521, end: 20070701
  4. NEURONTIN [Concomitant]
     Dosage: DAILY DOSE TEXT: 400 MG TWICE DAILY DAILY DOSE QTY: 800 MG
     Route: 065
  5. ZOLOFT [Concomitant]
     Dosage: DAILY DOSE TEXT: 50 MG ONCE DAILY DAILY DOSE QTY: 50 MG
     Route: 048

REACTIONS (4)
  - RESPIRATORY ARREST [None]
  - DRUG INTOLERANCE [None]
  - DIZZINESS [None]
  - PYREXIA [None]
